FAERS Safety Report 15475367 (Version 2)
Quarter: 2018Q4

REPORT INFORMATION
  Report Type: Spontaneous
  Country: US (occurrence: US)
  Receive Date: 20181008
  Receipt Date: 20181019
  Transmission Date: 20190205
  Serious: No
  Sender: FDA-Public Use
  Company Number: US-SA-2018SA275053

PATIENT
  Age: 28 Year
  Sex: Female

DRUGS (1)
  1. SELSUN BLUE [Suspect]
     Active Substance: SELENIUM SULFIDE
     Dosage: UNK
     Dates: start: 2018

REACTIONS (3)
  - Insomnia [Unknown]
  - Application site burn [Unknown]
  - Skin disorder [Unknown]

NARRATIVE: CASE EVENT DATE: 20180927
